FAERS Safety Report 16660947 (Version 1)
Quarter: 2019Q3

REPORT INFORMATION
  Report Type: Spontaneous
  Country: FR (occurrence: FR)
  Receive Date: 20190802
  Receipt Date: 20190802
  Transmission Date: 20191004
  Serious: Yes (Other)
  Sender: FDA-Public Use
  Company Number: FR-LEADING PHARMA, LLC-2072680

PATIENT
  Age: 41 Year
  Sex: Female

DRUGS (1)
  1. FOLIC ACID. [Suspect]
     Active Substance: FOLIC ACID
     Dates: start: 201710

REACTIONS (1)
  - Methylenetetrahydrofolate reductase deficiency [Recovered/Resolved]
